FAERS Safety Report 25794977 (Version 2)
Quarter: 2025Q3

REPORT INFORMATION
  Report Type: Spontaneous
  Country: TW (occurrence: TW)
  Receive Date: 20250912
  Receipt Date: 20250917
  Transmission Date: 20251021
  Serious: Yes (Life-Threatening, Hospitalization, Other)
  Sender: BRISTOL-MYERS SQUIBB COMPANY
  Company Number: TW-BRISTOL-MYERS SQUIBB COMPANY-2025-123838

PATIENT
  Age: 52 Year
  Sex: Male
  Weight: 64.9 kg

DRUGS (2)
  1. NIVOLUMAB [Suspect]
     Active Substance: NIVOLUMAB
     Indication: Hepatocellular carcinoma
  2. NELVUTAMIG [Suspect]
     Active Substance: NELVUTAMIG
     Indication: Hepatocellular carcinoma

REACTIONS (8)
  - Cardiogenic shock [Recovered/Resolved with Sequelae]
  - Immune-mediated myositis [Recovered/Resolved with Sequelae]
  - Immune-mediated thyroiditis [Recovered/Resolved with Sequelae]
  - Pulmonary embolism [Unknown]
  - Immune-mediated myocarditis [Recovered/Resolved with Sequelae]
  - Atrioventricular block [Unknown]
  - Malignant neoplasm progression [Unknown]
  - Infection [Unknown]

NARRATIVE: CASE EVENT DATE: 20250501
